FAERS Safety Report 8254858-9 (Version None)
Quarter: 2012Q2

REPORT INFORMATION
  Report Type: 
  Country: None (occurrence: None)
  Receive Date: 20120403
  Receipt Date: 20120330
  Transmission Date: 20120825
  Serious: Yes (Other)
  Sender: FDA-Public Use
  Company Number: PHHY2012AU015534

PATIENT
  Sex: Male
  Weight: 69 kg

DRUGS (10)
  1. DOMPERIDONE [Concomitant]
     Dosage: 10 MG, UNK
     Route: 062
  2. BENZHEXOL [Concomitant]
     Dosage: 1 MG, UNK
     Route: 062
  3. ATORVASTATIN [Concomitant]
     Dosage: 40 MG, AT NIGHT
  4. CARBIDOPA + LEVODOPA [Concomitant]
     Dosage: 3.5 DF, (1.5 DF IN MORNING, 1 AT MIDDAY AND 1 AT NIGHT)
  5. MULTI-VITAMIN [Concomitant]
  6. METOPROLOL TARTRATE [Suspect]
  7. SYMMETREL [Suspect]
     Dosage: 100 MG, IN THE MORNING
  8. OLANZAPINE [Concomitant]
     Dosage: 5 MG, AT NIGHT
  9. OMEPRAZOLE [Concomitant]
     Dosage: 20 MG, AT NIGHT
  10. CITALOPRAM HYDROBROMIDE [Concomitant]
     Dosage: 10 MG, IN THE MORNING

REACTIONS (9)
  - EJECTION FRACTION DECREASED [None]
  - HYPOTENSION [None]
  - DIASTOLIC DYSFUNCTION [None]
  - HEART RATE DECREASED [None]
  - DILATATION ATRIAL [None]
  - HEART VALVE INCOMPETENCE [None]
  - VENTRICULAR HYPERTROPHY [None]
  - PULMONARY VALVE INCOMPETENCE [None]
  - EXTRASYSTOLES [None]
